FAERS Safety Report 5483732-6 (Version None)
Quarter: 2007Q4

REPORT INFORMATION
  Report Type: 
  Country: None (occurrence: None)
  Receive Date: 20071012
  Receipt Date: 20071001
  Transmission Date: 20080405
  Serious: Yes (Life-Threatening, Other)
  Sender: FDA-Public Use
  Company Number: JP-BRACCO-BEI-007601

PATIENT
  Age: 56 Year
  Sex: Male

DRUGS (4)
  1. PROHANCE [Suspect]
     Route: 042
     Dates: start: 20070928, end: 20070928
  2. PROHANCE [Suspect]
     Indication: DIAGNOSTIC PROCEDURE
     Route: 042
     Dates: start: 20070928, end: 20070928
  3. GLYCYRON [Concomitant]
     Route: 048
     Dates: start: 20070831
  4. URSO 250 [Concomitant]
     Route: 048

REACTIONS (3)
  - ACIDOSIS [None]
  - CONVULSION [None]
  - RESPIRATORY ARREST [None]
